FAERS Safety Report 8141650-9 (Version None)
Quarter: 2012Q1

REPORT INFORMATION
  Report Type: 
  Country: None (occurrence: None)
  Receive Date: 20120216
  Receipt Date: 20120206
  Transmission Date: 20120608
  Serious: Yes (Hospitalization)
  Sender: FDA-Public Use
  Company Number: BE-ABBOTT-12P-013-0901609-00

PATIENT
  Sex: Male

DRUGS (2)
  1. REMICADE [Concomitant]
     Indication: PRODUCT USED FOR UNKNOWN INDICATION
  2. HUMIRA [Suspect]
     Indication: CROHN'S DISEASE
     Dosage: 160 MG (BASELINE)/80 MG (WEEK 2)
     Route: 058
     Dates: start: 20080801, end: 20081208

REACTIONS (1)
  - ANAL FISTULA [None]
